FAERS Safety Report 7854302-7 (Version None)
Quarter: 2011Q4

REPORT INFORMATION
  Report Type: 
  Country: None (occurrence: None)
  Receive Date: 20111026
  Receipt Date: 20111025
  Transmission Date: 20120403
  Serious: Yes (Other)
  Sender: FDA-Public Use
  Company Number: GB-ROCHE-1006726

PATIENT
  Sex: Female

DRUGS (1)
  1. ACTEMRA [Suspect]
     Indication: RHEUMATOID ARTHRITIS
     Route: 042
     Dates: start: 20110414, end: 20110414

REACTIONS (5)
  - RHEUMATOID ARTHRITIS [None]
  - ARTHRALGIA [None]
  - INFLAMMATION [None]
  - MYALGIA [None]
  - CONDITION AGGRAVATED [None]
